FAERS Safety Report 24769217 (Version 1)
Quarter: 2024Q4

REPORT INFORMATION
  Report Type: Report from Study
  Country: CA (occurrence: CA)
  Receive Date: 20241224
  Receipt Date: 20241224
  Transmission Date: 20250115
  Serious: Yes (Other)
  Sender: Alvotech
  Company Number: CA-JAMP PHARMA CORPORATION-2023-JAM-CA-00836

PATIENT
  Age: 58 Year
  Sex: Male

DRUGS (1)
  1. SIMLANDI [Suspect]
     Active Substance: ADALIMUMAB-RYVK
     Indication: Ankylosing spondylitis
     Dosage: 40 MG, EVERY 2 WEEKS
     Route: 058
     Dates: start: 20221130

REACTIONS (7)
  - Ankylosing spondylitis [Unknown]
  - Bone formation increased [Recovering/Resolving]
  - Condition aggravated [Unknown]
  - Pain [Recovering/Resolving]
  - Product dose omission issue [Unknown]
  - Product dispensing issue [Unknown]
  - Insurance issue [Unknown]
